FAERS Safety Report 11242525 (Version 11)
Quarter: 2016Q3

REPORT INFORMATION
  Report Type: Report from Study
  Country: CA (occurrence: CA)
  Receive Date: 20150707
  Receipt Date: 20160922
  Transmission Date: 20161109
  Serious: Yes (Life-Threatening, Hospitalization, Other)
  Sender: FDA-Public Use
  Company Number: CA-ROCHE-1568169

PATIENT
  Age: 57 Year
  Sex: Female
  Weight: 68.2 kg

DRUGS (20)
  1. FENTANYL. [Concomitant]
     Active Substance: FENTANYL
  2. ACTEMRA [Suspect]
     Active Substance: TOCILIZUMAB
     Route: 058
     Dates: start: 201608
  3. LEVOCARB [Concomitant]
     Active Substance: CARBIDOPA\LEVODOPA
  4. FOLIC ACID. [Concomitant]
     Active Substance: FOLIC ACID
  5. VENTOLIN [Concomitant]
     Active Substance: ALBUTEROL SULFATE
  6. OMEGA 3 [Concomitant]
     Active Substance: OMEGA-3 FATTY ACIDS
  7. VITAMIN D3 [Concomitant]
     Active Substance: CHOLECALCIFEROL
  8. RABEPRAZOLE [Concomitant]
     Active Substance: RABEPRAZOLE
  9. ACTEMRA [Suspect]
     Active Substance: TOCILIZUMAB
     Indication: RHEUMATOID ARTHRITIS
     Route: 058
     Dates: start: 20150406
  10. DILTIAZEM. [Concomitant]
     Active Substance: DILTIAZEM
  11. TRAZODONE [Concomitant]
     Active Substance: TRAZODONE HYDROCHLORIDE
  12. TUMS [Concomitant]
     Active Substance: CALCIUM CARBONATE
  13. PREDNISONE. [Concomitant]
     Active Substance: PREDNISONE
  14. ZOPICLONE [Concomitant]
     Active Substance: ZOPICLONE
  15. LIPITOR [Concomitant]
     Active Substance: ATORVASTATIN CALCIUM
  16. ENALAPRIL [Concomitant]
     Active Substance: ENALAPRIL
  17. PLAVIX [Concomitant]
     Active Substance: CLOPIDOGREL BISULFATE
  18. ALENDRONATE [Concomitant]
     Active Substance: ALENDRONATE SODIUM
  19. METHOTREXATE. [Concomitant]
     Active Substance: METHOTREXATE
     Route: 058
  20. GABAPENTIN. [Concomitant]
     Active Substance: GABAPENTIN

REACTIONS (24)
  - Neoplasm progression [Not Recovered/Not Resolved]
  - Hand deformity [Not Recovered/Not Resolved]
  - Pulmonary pain [Unknown]
  - Aspartate aminotransferase increased [Unknown]
  - Blister [Unknown]
  - White blood cell count increased [Unknown]
  - Oedema peripheral [Unknown]
  - Lung carcinoma cell type unspecified stage IV [Not Recovered/Not Resolved]
  - Nodule [Not Recovered/Not Resolved]
  - Neutrophil count increased [Unknown]
  - Arthralgia [Unknown]
  - Pneumonia [Recovering/Resolving]
  - Arthritis [Not Recovered/Not Resolved]
  - Pulmonary oedema [Unknown]
  - Peripheral swelling [Not Recovered/Not Resolved]
  - Malaise [Not Recovered/Not Resolved]
  - Dyspnoea exertional [Not Recovered/Not Resolved]
  - Back pain [Unknown]
  - Tendon pain [Unknown]
  - Weight increased [Unknown]
  - Gait disturbance [Unknown]
  - Pain in extremity [Not Recovered/Not Resolved]
  - Musculoskeletal stiffness [Not Recovered/Not Resolved]
  - Drug ineffective [Unknown]

NARRATIVE: CASE EVENT DATE: 20150627
